FAERS Safety Report 24294480 (Version 1)
Quarter: 2024Q3

REPORT INFORMATION
  Report Type: Other
  Country: FR (occurrence: FR)
  Receive Date: 20240906
  Receipt Date: 20240906
  Transmission Date: 20241017
  Serious: Yes (Hospitalization)
  Sender: B BRAUN
  Company Number: FR-B.Braun Medical Inc.-2161337

PATIENT
  Age: 67 Year
  Sex: Male

DRUGS (11)
  1. ACETAMINOPHEN [Suspect]
     Active Substance: ACETAMINOPHEN
     Indication: Analgesic therapy
  2. MORPHINE SULFATE [Suspect]
     Active Substance: MORPHINE SULFATE
  3. ASPIRIN [Concomitant]
     Active Substance: ASPIRIN
  4. TIVICAY [Concomitant]
     Active Substance: DOLUTEGRAVIR SODIUM
  5. RITONAVIR [Concomitant]
     Active Substance: RITONAVIR
  6. Arunavir [Concomitant]
  7. Odefsey (emtricitabine, rilpivirine, ?tenofovir alafenamide) [Concomitant]
  8. INSULIN NOS [Concomitant]
     Active Substance: INSULIN NOS
  9. FLUCONAZOLE [Concomitant]
     Active Substance: FLUCONAZOLE
  10. IMIPENEM [Concomitant]
     Active Substance: IMIPENEM
  11. NEFOPAM [Suspect]
     Active Substance: NEFOPAM

REACTIONS (2)
  - Pyroglutamic acidosis [Recovered/Resolved]
  - Off label use [Recovered/Resolved]
